FAERS Safety Report 12801400 (Version 2)
Quarter: 2019Q2

REPORT INFORMATION
  Report Type: Spontaneous
  Country: IT (occurrence: IT)
  Receive Date: 20161003
  Receipt Date: 20190507
  Transmission Date: 20190711
  Serious: Yes (Other)
  Sender: FDA-Public Use
  Company Number: IT-BAUSCH-BL-2016-023753

PATIENT
  Age: 10 Year
  Sex: Female

DRUGS (1)
  1. METRONIDAZOLE. [Suspect]
     Active Substance: METRONIDAZOLE
     Indication: HYPERGLYCINAEMIA
     Dosage: 3 WK/MO
     Route: 065

REACTIONS (2)
  - Neuropathy peripheral [Unknown]
  - Axonal neuropathy [Unknown]
